FAERS Safety Report 10813690 (Version 2)
Quarter: 2015Q1

REPORT INFORMATION
  Report Type: Spontaneous
  Country: RU (occurrence: RU)
  Receive Date: 20150218
  Receipt Date: 20150311
  Transmission Date: 20150721
  Serious: Yes (Hospitalization, Other)
  Sender: FDA-Public Use
  Company Number: RU-ELI_LILLY_AND_COMPANY-RU201502003697

PATIENT
  Age: 66 Year
  Sex: Female

DRUGS (2)
  1. LANTUS [Concomitant]
     Active Substance: INSULIN GLARGINE
  2. HUMALOG [Suspect]
     Active Substance: INSULIN LISPRO
     Indication: TYPE 1 DIABETES MELLITUS
     Dosage: UNK
     Route: 065

REACTIONS (4)
  - Blood glucose increased [Recovered/Resolved]
  - Pneumonia [Recovered/Resolved]
  - Immunodeficiency [Recovered/Resolved]
  - Drug ineffective [Recovered/Resolved]
